FAERS Safety Report 20870343 (Version 1)
Quarter: 2022Q2

REPORT INFORMATION
  Report Type: Spontaneous
  Country: US (occurrence: US)
  Receive Date: 20220525
  Receipt Date: 20220525
  Transmission Date: 20220721
  Serious: No
  Sender: FDA-Public Use
  Company Number: US-Vifor (International) Inc.-VIT-2022-02212

PATIENT
  Sex: Male
  Weight: 91 kg

DRUGS (8)
  1. VELPHORO [Suspect]
     Active Substance: SUCROFERRIC OXYHYDROXIDE
     Indication: Blood phosphorus increased
     Dosage: WITH MEALS
     Route: 048
     Dates: start: 20220411
  2. FERRLECIT [Concomitant]
     Active Substance: SODIUM FERRIC GLUCONATE COMPLEX
     Dates: start: 20220117
  3. HEPARIN [Concomitant]
     Active Substance: HEPARIN SODIUM
     Dosage: 3000 UNITS (100 UNITS/ML SOLUTION)
     Route: 040
     Dates: start: 20210802
  4. LIDOCAINE [Concomitant]
     Active Substance: LIDOCAINE
     Indication: Anaesthesia
     Dosage: (1 % SOLUTION)
     Route: 023
     Dates: start: 20210827
  5. MIRCERA [Concomitant]
     Active Substance: METHOXY POLYETHYLENE GLYCOL-EPOETIN BETA
     Dosage: 30 MICROGRAM/ 0.3 ML SOLUTION, EVERY MONDAY FOR 4 WEEKS
     Route: 042
     Dates: start: 20220314, end: 20220421
  6. MIRCERA [Concomitant]
     Active Substance: METHOXY POLYETHYLENE GLYCOL-EPOETIN BETA
     Dosage: 50 MICROGRAM/ 0.3 ML SOLUTION, EVERY MONDAY FOR 4 WEEKS
     Route: 042
     Dates: start: 20220421
  7. PARICALCITOL [Concomitant]
     Active Substance: PARICALCITOL
     Dosage: 5 MCG/ML SOLUTION
     Route: 042
     Dates: start: 20220114
  8. SEVELAMER [Concomitant]
     Active Substance: SEVELAMER
     Dosage: WITH MEALS
     Route: 048
     Dates: start: 20211210, end: 20220411

REACTIONS (2)
  - Peripheral swelling [Not Recovered/Not Resolved]
  - Skin tightness [Not Recovered/Not Resolved]
